FAERS Safety Report 10061580 (Version 2)
Quarter: 2014Q2

REPORT INFORMATION
  Report Type: Spontaneous
  Country: DE (occurrence: None)
  Receive Date: 20140403
  Receipt Date: 20140415
  Transmission Date: 20141212
  Serious: Yes (Hospitalization)
  Sender: FDA-Public Use
  Company Number: 2014MPI00289

PATIENT
  Age: 36 Year
  Sex: 0

DRUGS (11)
  1. BRENTUXIMAB VEDOTIN [Suspect]
     Indication: HODGKIN^S DISEASE
     Dates: start: 20140314, end: 20140314
  2. ETOPOSIDE [Suspect]
     Indication: HODGKIN^S DISEASE
     Dates: start: 20140315, end: 20140316
  3. CYCLOPHOSPHAMIDE [Suspect]
     Indication: HODGKIN^S DISEASE
     Dates: start: 20140315, end: 20140315
  4. PROCARBAZINE [Suspect]
     Indication: HODGKIN^S DISEASE
     Dates: start: 20140315, end: 20140317
  5. PREDNISONE [Suspect]
     Indication: HODGKIN^S DISEASE
     Dates: start: 20140315, end: 20140317
  6. DOXORUBICIN [Suspect]
     Indication: HODGKIN^S DISEASE
     Dates: start: 20140315, end: 20140315
  7. ONDANSETRON [Suspect]
     Indication: PRODUCT USED FOR UNKNOWN INDICATION
  8. DACARBAZINE (DACARBAZINE) [Suspect]
     Indication: HODGKIN^S DISEASE
  9. DEXAMETHASONE (DEXMETHASONE) [Suspect]
     Indication: HODGKIN^S DISEASE
  10. CEFTRIAXONE (CEFTRIAXONE SODIUM) [Concomitant]
  11. METRONIDAZOLE (METRONIDAZOLE SODIUM) [Concomitant]

REACTIONS (4)
  - Ileus [None]
  - Renal cyst [None]
  - Hepatosplenomegaly [None]
  - Coeliac artery stenosis [None]
